FAERS Safety Report 6717531-1 (Version None)
Quarter: 2010Q2

REPORT INFORMATION
  Report Type: 
  Country: None (occurrence: None)
  Receive Date: 20100507
  Receipt Date: 20100507
  Transmission Date: 20101027
  Serious: Yes (Life-Threatening)
  Sender: FDA-Public Use
  Company Number: None

PATIENT
  Age: 54 Year
  Sex: Male
  Weight: 66 kg

DRUGS (1)
  1. RITUXAN [Suspect]
     Indication: CHRONIC LYMPHOCYTIC LEUKAEMIA
     Dosage: 800 MG ONE TIME IV
     Route: 042
     Dates: start: 20100505, end: 20100505

REACTIONS (4)
  - DYSPNOEA [None]
  - FLUSHING [None]
  - PALPITATIONS [None]
  - THROAT TIGHTNESS [None]
